FAERS Safety Report 20265047 (Version 3)
Quarter: 2022Q1

REPORT INFORMATION
  Report Type: Spontaneous
  Country: US (occurrence: US)
  Receive Date: 20211231
  Receipt Date: 20220118
  Transmission Date: 20220424
  Serious: Yes (Death, Hospitalization)
  Sender: FDA-Public Use
  Company Number: US-NOVARTISPH-NVSC2021US299248

PATIENT
  Sex: Male
  Weight: 20.1 kg

DRUGS (2)
  1. PROMACTA [Suspect]
     Active Substance: ELTROMBOPAG OLAMINE
     Indication: Thrombocytopenia
     Dosage: 1 DOSAGE FORM, QD (ONCE DAILY)
     Route: 048
     Dates: start: 201904
  2. PROMACTA [Suspect]
     Active Substance: ELTROMBOPAG OLAMINE
     Indication: Autoimmune pancytopenia
     Dosage: 50 MG
     Route: 048
     Dates: start: 20210312

REACTIONS (6)
  - COVID-19 [Fatal]
  - Pneumonia bacterial [Fatal]
  - Respiratory symptom [Fatal]
  - Pyrexia [Fatal]
  - Cough [Fatal]
  - Dyspnoea [Fatal]
